FAERS Safety Report 21065743 (Version 1)
Quarter: 2022Q3

REPORT INFORMATION
  Report Type: Spontaneous
  Country: FR (occurrence: FR)
  Receive Date: 20220711
  Receipt Date: 20220711
  Transmission Date: 20221027
  Serious: Yes (Hospitalization, Other)
  Sender: FDA-Public Use
  Company Number: None

PATIENT

DRUGS (2)
  1. PICOPREP [Interacting]
     Active Substance: ANHYDROUS CITRIC ACID\MAGNESIUM OXIDE\SODIUM PICOSULFATE
     Indication: Bowel preparation
     Dosage: 1 DOSAGE FORM
     Route: 065
     Dates: start: 20211214, end: 20211214
  2. TENORETIC [Interacting]
     Active Substance: ATENOLOL\CHLORTHALIDONE
     Indication: Hypertension
     Dosage: 0.5 DOSAGE FORM, 1 TIME DAILY
     Route: 065
     Dates: start: 2021, end: 20211215

REACTIONS (2)
  - Hyponatraemic coma [Recovered/Resolved]
  - Drug interaction [Recovered/Resolved]

NARRATIVE: CASE EVENT DATE: 20211214
